FAERS Safety Report 4376989-6 (Version None)
Quarter: 2004Q2

REPORT INFORMATION
  Report Type: 
  Country: None (occurrence: None)
  Receive Date: 20040614
  Receipt Date: 20030919
  Transmission Date: 20050107
  Serious: Yes (Other)
  Sender: FDA-Public Use
  Company Number: US-MERCK-0309USA02383

PATIENT
  Age: 51 Year
  Sex: Male
  Weight: 68 kg

DRUGS (4)
  1. ASPIRIN [Concomitant]
     Indication: OSTEOARTHRITIS
     Route: 065
  2. VIOXX [Suspect]
     Indication: CARDIAC DISORDER
     Route: 048
  3. VIOXX [Suspect]
     Route: 048
  4. VIOXX [Suspect]
     Route: 048

REACTIONS (14)
  - ANGINA PECTORIS [None]
  - ASTHENIA [None]
  - CARDIAC DISORDER [None]
  - CARDIAC FAILURE CONGESTIVE [None]
  - CARDIAC MURMUR [None]
  - CARDIAC VALVE DISEASE [None]
  - CARDIOMEGALY [None]
  - CAROTID ARTERY STENOSIS [None]
  - CHEST DISCOMFORT [None]
  - CONVULSION [None]
  - CORONARY ARTERY DISEASE [None]
  - EMOTIONAL DISTRESS [None]
  - MYOCARDIAL INFARCTION [None]
  - OVERDOSE [None]
